FAERS Safety Report 4388969-5 (Version None)
Quarter: 2004Q2

REPORT INFORMATION
  Report Type: 
  Country: None (occurrence: None)
  Receive Date: 20040628
  Receipt Date: 20040618
  Transmission Date: 20050107
  Serious: Yes (Hospitalization)
  Sender: FDA-Public Use
  Company Number: HQWYE527121JUN04

PATIENT
  Age: 39 Year
  Sex: Female

DRUGS (3)
  1. VENLAFAXINE HCL [Suspect]
     Indication: DYSTHYMIC DISORDER
     Dosage: 850-900 MG (OVERDOSE AMOUNT)
     Route: 048
     Dates: start: 20040103, end: 20040103
  2. VENLAFAXINE HCL [Suspect]
     Indication: PERSONALITY DISORDER
     Dosage: 850-900 MG (OVERDOSE AMOUNT)
     Route: 048
     Dates: start: 20040103, end: 20040103
  3. LORAZEPAM [Concomitant]

REACTIONS (5)
  - GRAND MAL CONVULSION [None]
  - INTENTIONAL OVERDOSE [None]
  - MENTAL DISORDER [None]
  - SUICIDAL IDEATION [None]
  - SUICIDE ATTEMPT [None]
